FAERS Safety Report 5804249-2 (Version None)
Quarter: 2008Q3

REPORT INFORMATION
  Report Type: 
  Country: None (occurrence: None)
  Receive Date: 20080709
  Receipt Date: 20080703
  Transmission Date: 20090109
  Serious: Yes (Hospitalization)
  Sender: FDA-Public Use
  Company Number: JP-WYE-H04828908

PATIENT
  Age: 63 Year
  Sex: Male
  Weight: 75 kg

DRUGS (5)
  1. PIPERACILLIN AND TAZOBACTAM [Suspect]
     Indication: URINARY TRACT INFECTION
     Route: 041
     Dates: start: 20080624, end: 20080624
  2. LACTATED RINGER'S [Concomitant]
     Dosage: UNKNOWN
     Route: 065
  3. PREDONINE [Concomitant]
     Dosage: UNKNOWN
     Route: 065
  4. MEVALOTIN [Concomitant]
     Dosage: UNKNOWN
     Route: 048
  5. NORVASC [Concomitant]
     Dosage: UNKNOWN
     Route: 048

REACTIONS (3)
  - ANAPHYLACTIC SHOCK [None]
  - CHEST PAIN [None]
  - ELECTROCARDIOGRAM ST SEGMENT ELEVATION [None]
